FAERS Safety Report 22157841 (Version 12)
Quarter: 2025Q1

REPORT INFORMATION
  Report Type: Spontaneous
  Country: US (occurrence: US)
  Receive Date: 20230330
  Receipt Date: 20250313
  Transmission Date: 20250408
  Serious: Yes (Hospitalization, Other)
  Sender: PFIZER
  Company Number: US-PFIZER INC-PV202200108636

PATIENT
  Age: 68 Year
  Sex: Female

DRUGS (4)
  1. IBRANCE [Suspect]
     Active Substance: PALBOCICLIB
     Indication: Breast cancer female
  2. IBRANCE [Suspect]
     Active Substance: PALBOCICLIB
  3. IBRANCE [Suspect]
     Active Substance: PALBOCICLIB
     Dates: end: 202311
  4. IBRANCE [Suspect]
     Active Substance: PALBOCICLIB
     Route: 048

REACTIONS (8)
  - Pneumonia [Unknown]
  - Influenza [Unknown]
  - Appendicitis perforated [Unknown]
  - Anxiety disorder [Unknown]
  - Blood test abnormal [Unknown]
  - Malaise [Unknown]
  - Memory impairment [Unknown]
  - Infection [Unknown]

NARRATIVE: CASE EVENT DATE: 20230101
